FAERS Safety Report 25779633 (Version 1)
Quarter: 2025Q3

REPORT INFORMATION
  Report Type: Spontaneous
  Country: EU (occurrence: EU)
  Receive Date: 20250909
  Receipt Date: 20250909
  Transmission Date: 20251020
  Serious: Yes (Other)
  Sender: MYLAN
  Company Number: EU-PFIZER INC-2020340490

PATIENT
  Age: 71 Year
  Sex: Female

DRUGS (2)
  1. PREGABALIN [Suspect]
     Active Substance: PREGABALIN
     Indication: Neuropathy peripheral
     Dosage: 100 MG, 2X/DAY
  2. CISPLATIN [Concomitant]
     Active Substance: CISPLATIN
     Indication: Neoplasm malignant

REACTIONS (3)
  - Somnolence [Recovered/Resolved]
  - Depression [Recovered/Resolved]
  - Drug ineffective [Recovered/Resolved]
